FAERS Safety Report 6830225-7 (Version None)
Quarter: 2010Q3

REPORT INFORMATION
  Report Type: 
  Country: None (occurrence: None)
  Receive Date: 20100711
  Receipt Date: 20100621
  Transmission Date: 20110219
  Serious: No
  Sender: FDA-Public Use
  Company Number: US-ALLERGAN-1008134US

PATIENT
  Sex: Female

DRUGS (1)
  1. LATISSE [Suspect]
     Indication: HYPOTRICHOSIS

REACTIONS (7)
  - EPHELIDES [None]
  - EYE PAIN [None]
  - MADAROSIS [None]
  - OCULAR HYPERAEMIA [None]
  - PRURITUS [None]
  - SKIN HYPERPIGMENTATION [None]
  - VISION BLURRED [None]
